FAERS Safety Report 5827552-9 (Version None)
Quarter: 2008Q3

REPORT INFORMATION
  Report Type: 
  Country: None (occurrence: None)
  Receive Date: 20080730
  Receipt Date: 20080723
  Transmission Date: 20090109
  Serious: Yes (Death, Hospitalization)
  Sender: FDA-Public Use
  Company Number: GB-ASTRAZENECA-2008GB01121

PATIENT
  Age: 48 Year
  Sex: Male
  Weight: 118 kg

DRUGS (5)
  1. QUETIAPINE [Suspect]
     Indication: SCHIZOPHRENIA
     Route: 048
     Dates: start: 20050101
  2. ATORVASTATIN [Suspect]
     Indication: BLOOD CHOLESTEROL INCREASED
     Route: 048
     Dates: start: 20050101
  3. SERTRALINE [Suspect]
     Indication: DEPRESSION
     Route: 048
     Dates: start: 20060314, end: 20060728
  4. UNSPECIFIED DRUG [Suspect]
     Route: 065
  5. ARIPIPRAZOLE [Concomitant]
     Indication: SCHIZOPHRENIA
     Route: 048
     Dates: start: 20050101

REACTIONS (4)
  - HEPATIC FAILURE [None]
  - HEPATIC STEATOSIS [None]
  - OEDEMA [None]
  - PULMONARY CONGESTION [None]
